FAERS Safety Report 6121384-2 (Version None)
Quarter: 2009Q1

REPORT INFORMATION
  Report Type: 
  Country: None (occurrence: None)
  Receive Date: 20090313
  Receipt Date: 20090305
  Transmission Date: 20090719
  Serious: No
  Sender: FDA-Public Use
  Company Number: APP200900121

PATIENT
  Age: 6 Month
  Sex: Male

DRUGS (8)
  1. HEPARIN SODIUM INJ [Suspect]
     Indication: CARDIAC OPERATION
     Dosage: 2000 USP UNITS, ONCE, INTRA-ARTERIAL
     Route: 013
     Dates: start: 20090224, end: 20090224
  2. SEVOFLURANE [Concomitant]
  3. DESFLURANE (DESFLURANE) [Concomitant]
  4. PANCURONIUM (PANCURONIUM) [Suspect]
  5. AFRIN [Concomitant]
  6. SUFENTANIL CITRATE [Concomitant]
  7. ANCEF [Concomitant]
  8. LATEX [Concomitant]

REACTIONS (2)
  - ANAPHYLACTIC REACTION [None]
  - PULMONARY FUNCTION TEST DECREASED [None]
